FAERS Safety Report 5813634-4 (Version None)
Quarter: 2008Q3

REPORT INFORMATION
  Report Type: 
  Country: None (occurrence: None)
  Receive Date: 20080717
  Receipt Date: 20080714
  Transmission Date: 20090109
  Serious: Yes (Other)
  Sender: FDA-Public Use
  Company Number: US-JNJFOC-20080703965

PATIENT
  Age: 10 Year
  Sex: Male

DRUGS (9)
  1. RISPERDAL [Suspect]
     Indication: DEPRESSION
     Route: 048
  2. RISPERDAL [Suspect]
     Indication: BIPOLAR DISORDER
     Route: 048
  3. RISPERDAL [Suspect]
     Indication: SCHIZOPHRENIA
     Route: 048
  4. SEROQUEL [Suspect]
     Indication: DEPRESSION
     Route: 048
  5. SEROQUEL [Suspect]
     Indication: BIPOLAR DISORDER
     Route: 048
  6. SEROQUEL [Suspect]
     Indication: SCHIZOPHRENIA
     Route: 048
  7. ZYPREXA [Concomitant]
     Indication: DEPRESSION
     Route: 065
  8. ZYPREXA [Concomitant]
     Indication: BIPOLAR DISORDER
     Route: 065
  9. ZYPREXA [Concomitant]
     Indication: SCHIZOPHRENIA
     Route: 065

REACTIONS (2)
  - PANCREATITIS ACUTE [None]
  - TYPE 2 DIABETES MELLITUS [None]
